FAERS Safety Report 9742752 (Version 3)
Quarter: 2015Q3

REPORT INFORMATION
  Report Type: Spontaneous
  Country: US (occurrence: US)
  Receive Date: 20131210
  Receipt Date: 20150805
  Transmission Date: 20151125
  Serious: No
  Sender: FDA-Public Use
  Company Number: US-GILEAD-2009-0025733

PATIENT
  Age: 61 Year
  Sex: Male
  Weight: 127.91 kg

DRUGS (27)
  1. DIPHENOXYLATE/ATROP SULF [Concomitant]
  2. LORATADINE. [Concomitant]
     Active Substance: LORATADINE
  3. LIBRAX [Concomitant]
     Active Substance: CHLORDIAZEPOXIDE HYDROCHLORIDE\CLIDINIUM BROMIDE
  4. FLEXERIL [Concomitant]
     Active Substance: CYCLOBENZAPRINE HYDROCHLORIDE
  5. LISINOPRIL. [Concomitant]
     Active Substance: LISINOPRIL
  6. LEVOTHYROXINE. [Concomitant]
     Active Substance: LEVOTHYROXINE
  7. GABAPENTIN. [Concomitant]
     Active Substance: GABAPENTIN
  8. LOPERAMIDE [Concomitant]
     Active Substance: LOPERAMIDE
  9. RANITIDINE [Concomitant]
     Active Substance: RANITIDINE\RANITIDINE HYDROCHLORIDE
  10. BUSPAR [Concomitant]
     Active Substance: BUSPIRONE HYDROCHLORIDE
  11. METOPROLOL [Concomitant]
     Active Substance: METOPROLOL
  12. FUROSEMIDE. [Concomitant]
     Active Substance: FUROSEMIDE
  13. IPRATROPIUM BROMIDE. [Concomitant]
     Active Substance: IPRATROPIUM BROMIDE
  14. SIMVASTATIN. [Concomitant]
     Active Substance: SIMVASTATIN
  15. ZOCOR [Concomitant]
     Active Substance: SIMVASTATIN
  16. SUCRALFATE. [Concomitant]
     Active Substance: SUCRALFATE
  17. METOCLOPRAMIDE. [Concomitant]
     Active Substance: METOCLOPRAMIDE
  18. TIZANIDINE. [Concomitant]
     Active Substance: TIZANIDINE
  19. VIAGRA [Concomitant]
     Active Substance: SILDENAFIL CITRATE
  20. COUMADIN [Concomitant]
     Active Substance: WARFARIN SODIUM
  21. PROVIGIL [Concomitant]
     Active Substance: MODAFINIL
  22. MORPHINE [Concomitant]
     Active Substance: MORPHINE
  23. FOLIC ACID. [Concomitant]
     Active Substance: FOLIC ACID
  24. LETAIRIS [Suspect]
     Active Substance: AMBRISENTAN
     Indication: PULMONARY ARTERIAL HYPERTENSION
     Route: 048
     Dates: start: 20090303
  25. VICODIN ES [Concomitant]
     Active Substance: ACETAMINOPHEN\HYDROCODONE BITARTRATE
  26. FORMOTEROL FUMARATE [Concomitant]
     Active Substance: FORMOTEROL FUMARATE
  27. POLYETHYLENE GLYCOL [Concomitant]
     Active Substance: POLYETHYLENE GLYCOLS

REACTIONS (2)
  - Dyspnoea [Unknown]
  - Vision blurred [Unknown]
